FAERS Safety Report 7893137-6 (Version None)
Quarter: 2011Q4

REPORT INFORMATION
  Report Type: 
  Country: None (occurrence: None)
  Receive Date: 20111104
  Receipt Date: 20111026
  Transmission Date: 20120403
  Serious: Yes (Other)
  Sender: FDA-Public Use
  Company Number: DE-JNJFOC-20111009402

PATIENT
  Age: 52 Year
  Sex: Male
  Weight: 94.6 kg

DRUGS (5)
  1. REMICADE [Suspect]
     Indication: CROHN'S DISEASE
     Route: 042
     Dates: end: 20110901
  2. REMICADE [Suspect]
     Dosage: 5 CYCLES
     Route: 042
     Dates: start: 20100601, end: 20110601
  3. REMICADE [Suspect]
     Route: 042
     Dates: end: 20110901
  4. REMICADE [Suspect]
     Indication: GASTROINTESTINAL DISORDER
     Dosage: 5 CYCLES
     Route: 042
     Dates: start: 20100601, end: 20110601
  5. FALITHROM [Concomitant]

REACTIONS (10)
  - GASTRITIS EROSIVE [None]
  - HERNIA OBSTRUCTIVE [None]
  - SQUAMOUS CELL CARCINOMA [None]
  - MESENTERIC VEIN THROMBOSIS [None]
  - ANAEMIA VITAMIN B12 DEFICIENCY [None]
  - HIATUS HERNIA [None]
  - IRON DEFICIENCY ANAEMIA [None]
  - NEOPLASM [None]
  - METASTASES TO PERITONEUM [None]
  - ANAEMIA FOLATE DEFICIENCY [None]
